FAERS Safety Report 13798557 (Version 3)
Quarter: 2017Q3

REPORT INFORMATION
  Report Type: Spontaneous
  Country: US (occurrence: US)
  Receive Date: 20170727
  Receipt Date: 20170823
  Transmission Date: 20171127
  Serious: Yes (Death, Hospitalization)
  Sender: FDA-Public Use
  Company Number: US-UNITED THERAPEUTICS-UNT-2017-010798

PATIENT
  Age: 79 Year
  Sex: Female
  Weight: 78.5 kg

DRUGS (2)
  1. TYVASO [Suspect]
     Active Substance: TREPROSTINIL
     Indication: PULMONARY ARTERIAL HYPERTENSION
     Dosage: 18-72 ?G, QID
     Dates: start: 20170706, end: 201707
  2. TYVASO [Suspect]
     Active Substance: TREPROSTINIL
     Dosage: 18-54 ?G, QID

REACTIONS (6)
  - Death [Fatal]
  - Malignant ascites [Not Recovered/Not Resolved]
  - Gastrointestinal ischaemia [Unknown]
  - Colon gangrene [Unknown]
  - Off label use [Unknown]
  - Septic shock [Unknown]

NARRATIVE: CASE EVENT DATE: 2017
